FAERS Safety Report 6998692-6 (Version None)
Quarter: 2010Q3

REPORT INFORMATION
  Report Type: 
  Country: None (occurrence: None)
  Receive Date: 20100920
  Receipt Date: 20100603
  Transmission Date: 20110219
  Serious: No
  Sender: FDA-Public Use
  Company Number: US-ASTRAZENECA-2010SE25742

PATIENT
  Age: 42 Year
  Sex: Male
  Weight: 131.5 kg

DRUGS (5)
  1. SEROQUEL [Suspect]
     Indication: DEPRESSION
     Dosage: 1 DAILY
     Route: 048
     Dates: start: 20040921, end: 20051026
  2. SEROQUEL [Suspect]
     Indication: SLEEP DISORDER
     Dosage: 1 DAILY
     Route: 048
     Dates: start: 20040921, end: 20051026
  3. ABILIFY [Concomitant]
  4. HALDOL [Concomitant]
  5. THORAZINE [Concomitant]

REACTIONS (4)
  - GLYCOSURIA [None]
  - LIMB INJURY [None]
  - OBESITY [None]
  - TYPE 2 DIABETES MELLITUS [None]
